FAERS Safety Report 6859504-4 (Version None)
Quarter: 2010Q3

REPORT INFORMATION
  Report Type: 
  Country: None (occurrence: None)
  Receive Date: 20100719
  Receipt Date: 20080303
  Transmission Date: 20110219
  Serious: No
  Sender: FDA-Public Use
  Company Number: US-PFIZER INC-2008020147

PATIENT
  Sex: Female
  Weight: 72.6 kg

DRUGS (10)
  1. CHANTIX [Suspect]
     Indication: SMOKING CESSATION THERAPY
     Route: 048
     Dates: start: 20080227, end: 20080302
  2. NALBUPHINE HYDROCHLORIDE [Concomitant]
     Indication: PAIN
  3. VITAMIN B-12 [Concomitant]
  4. LYRICA [Concomitant]
  5. METOCLOPRAMIDE [Concomitant]
  6. MINOCYCLINE [Concomitant]
  7. ALL OTHER THERAPEUTIC PRODUCTS [Concomitant]
  8. B100 [Concomitant]
  9. CYMBALTA [Concomitant]
  10. TIZANIDINE HCL [Concomitant]

REACTIONS (2)
  - FEELING ABNORMAL [None]
  - NAUSEA [None]
